FAERS Safety Report 13893741 (Version 1)
Quarter: 2017Q3

REPORT INFORMATION
  Report Type: Spontaneous
  Country: FR (occurrence: FR)
  Receive Date: 20170822
  Receipt Date: 20170822
  Transmission Date: 20171127
  Serious: Yes (Other)
  Sender: FDA-Public Use
  Company Number: PHHY2017FR120074

PATIENT
  Sex: Male

DRUGS (2)
  1. MEROPENEM. [Concomitant]
     Active Substance: MEROPENEM
     Indication: BRAIN ABSCESS
     Dosage: 2 G, Q8H
     Route: 042
  2. LINEZOLID. [Suspect]
     Active Substance: LINEZOLID
     Indication: BRAIN ABSCESS
     Dosage: 600 MG, Q12H
     Route: 065

REACTIONS (3)
  - Bone marrow failure [Recovered/Resolved]
  - Haematotoxicity [Recovered/Resolved]
  - Platelet count decreased [Recovered/Resolved]
